FAERS Safety Report 6678007-3 (Version None)
Quarter: 2010Q2

REPORT INFORMATION
  Report Type: 
  Country: None (occurrence: None)
  Receive Date: 20100412
  Receipt Date: 20100311
  Transmission Date: 20101027
  Serious: No
  Sender: FDA-Public Use
  Company Number: US-BAYER-201013113BCC

PATIENT
  Age: 71 Year
  Sex: Female
  Weight: 66 kg

DRUGS (3)
  1. ALEVE [Suspect]
     Indication: HEADACHE
     Dosage: TOTAL DAILY DOSE: 440 MG  UNIT DOSE: 220 MG
     Route: 048
     Dates: start: 20100311
  2. CARDIZEM [Concomitant]
     Route: 065
  3. LIPITOR [Concomitant]
     Route: 065

REACTIONS (2)
  - HEADACHE [None]
  - MIGRAINE [None]
